FAERS Safety Report 4714461-1 (Version None)
Quarter: 2005Q3

REPORT INFORMATION
  Report Type: 
  Country: None (occurrence: None)
  Receive Date: 20050705
  Receipt Date: 20050211
  Transmission Date: 20060218
  Serious: Yes (Other)
  Sender: FDA-Public Use
  Company Number: 2005-0008047

PATIENT
  Age: 45 Year
  Sex: Male
  Weight: 59 kg

DRUGS (5)
  1. CYMBALTA [Suspect]
     Indication: HIV INFECTION
     Dosage: 300 MG, 1IN 1 D, ORAL
     Route: 048
     Dates: start: 20040701, end: 20041101
  2. LAMIVUDINE [Concomitant]
  3. ATV (ATAZANAVIR) [Concomitant]
  4. RTV (RITONAVIR) [Concomitant]
  5. ALTACE [Concomitant]

REACTIONS (1)
  - RENAL FAILURE [None]
